FAERS Safety Report 9423681 (Version 1)
Quarter: 2013Q3

REPORT INFORMATION
  Report Type: Spontaneous
  Country: CO (occurrence: CO)
  Receive Date: 20130727
  Receipt Date: 20130727
  Transmission Date: 20140515
  Serious: Yes (Other)
  Sender: FDA-Public Use
  Company Number: CO-AMGEN-COLSP2012056494

PATIENT
  Age: 66 Year
  Sex: Female

DRUGS (11)
  1. ENBREL [Suspect]
     Indication: RHEUMATOID ARTHRITIS
     Dosage: 50 MG, WEEKLY
     Route: 058
     Dates: start: 2008, end: 201210
  2. ENBREL [Suspect]
     Dosage: 50 MG, WEEKLY
     Route: 058
     Dates: start: 20130328
  3. NEURONTIN [Suspect]
     Indication: NERVOUS SYSTEM DISORDER
     Dosage: 300 MG, 1X/DAY
     Route: 048
     Dates: start: 2000
  4. THYROXINE [Concomitant]
     Indication: HYPOTHYROIDISM
     Dosage: 75 MCG, 1X/DAY
     Route: 048
     Dates: start: 1983
  5. CALCITRIOL [Concomitant]
     Indication: OSTEOPOROSIS
     Dosage: 0.25 MG, 1X/DAY
     Route: 048
     Dates: start: 1993
  6. CALCIUM WITH VITAMIN D             /00944201/ [Concomitant]
     Dosage: UNK
  7. BERACTANT [Concomitant]
     Indication: HYPERTENSION
     Dosage: 120 MG, 1X/DAY
     Route: 048
     Dates: start: 1993
  8. NIMODIPINE [Concomitant]
     Indication: NERVOUS SYSTEM DISORDER
     Dosage: 30 MG, 1X/DAY
     Route: 048
     Dates: start: 2000
  9. PREDNISOLON                        /00016201/ [Concomitant]
     Indication: RHEUMATOID ARTHRITIS
     Dosage: 5 MG, 1X/DAY
     Route: 048
     Dates: start: 2010
  10. ARAVA [Concomitant]
     Indication: RHEUMATOID ARTHRITIS
     Dosage: 20 MG, 1X/DAY
     Route: 048
     Dates: start: 2012
  11. MICARDIS [Concomitant]
     Indication: HYPERTENSION
     Dosage: 80 MG, 1X/DAY
     Route: 048
     Dates: start: 20130319, end: 20130629

REACTIONS (8)
  - Transient ischaemic attack [Unknown]
  - Intervertebral disc protrusion [Unknown]
  - Tuberculin test positive [Unknown]
  - Vascular calcification [Unknown]
  - Injection site urticaria [Unknown]
  - Injection site swelling [Unknown]
  - Injection site haematoma [Unknown]
  - Pain in extremity [Not Recovered/Not Resolved]
